FAERS Safety Report 8447318 (Version 2)
Quarter: 2013Q4

REPORT INFORMATION
  Report Type: Spontaneous
  Country: US (occurrence: None)
  Receive Date: 20120126
  Receipt Date: 20131226
  Transmission Date: 20140711
  Serious: Yes (Death, Hospitalization, Other)
  Sender: FDA-Public Use
  Company Number: PHEH2011US011273

PATIENT
  Age: 75 Year
  Sex: Male

DRUGS (1)
  1. AFINITOR [Suspect]
     Indication: MALIGNANT NEOPLASM PROGRESSION
     Route: 048
     Dates: start: 201108

REACTIONS (4)
  - Pneumonia [None]
  - Diabetes mellitus [None]
  - Neoplasm [None]
  - Malignant neoplasm progression [None]
